FAERS Safety Report 24854939 (Version 1)
Quarter: 2025Q1

REPORT INFORMATION
  Report Type: Spontaneous
  Country: US (occurrence: US)
  Receive Date: 20250117
  Receipt Date: 20250117
  Transmission Date: 20250408
  Serious: No
  Sender: ROCHE
  Company Number: US-ROCHE-10000178681

PATIENT
  Sex: Male

DRUGS (5)
  1. RITUXIMAB [Suspect]
     Active Substance: RITUXIMAB
     Indication: COVID-19
     Route: 065
  2. PREDNISONE [Concomitant]
     Active Substance: PREDNISONE
  3. FOSTAMATINIB [Concomitant]
     Active Substance: FOSTAMATINIB
  4. CYCLOPHOSPHAMIDE [Concomitant]
     Active Substance: CYCLOPHOSPHAMIDE
  5. DEXAMETHASONE [Concomitant]
     Active Substance: DEXAMETHASONE

REACTIONS (2)
  - Off label use [Unknown]
  - No adverse event [Unknown]
